FAERS Safety Report 5213397-X (Version None)
Quarter: 2007Q1

REPORT INFORMATION
  Report Type: 
  Country: None (occurrence: None)
  Receive Date: 20070119
  Receipt Date: 20061110
  Transmission Date: 20070707
  Serious: No
  Sender: FDA-Public Use
  Company Number: US-GLAXOSMITHKLINE-A0627019A

PATIENT
  Age: 79 Year
  Sex: Female

DRUGS (4)
  1. ARIXTRA [Suspect]
     Dosage: 7.5MG PER DAY
     Route: 058
     Dates: start: 20060301
  2. ZOLOFT [Concomitant]
  3. ZYPREXA [Concomitant]
  4. WELLBUTRIN [Concomitant]

REACTIONS (3)
  - ANOREXIA [None]
  - HAEMATOMA [None]
  - WEIGHT DECREASED [None]
